FAERS Safety Report 14402481 (Version 1)
Quarter: 2018Q1

REPORT INFORMATION
  Report Type: Spontaneous
  Country: US (occurrence: US)
  Receive Date: 20180116
  Receipt Date: 20180116
  Transmission Date: 20180509
  Serious: Yes (Death)
  Sender: FDA-Public Use
  Company Number: None

PATIENT
  Age: 78 Year
  Sex: Male
  Weight: 81 kg

DRUGS (1)
  1. ZYPREXA [Suspect]
     Active Substance: OLANZAPINE

REACTIONS (8)
  - Bowel movement irregularity [None]
  - Anger [None]
  - Anxiety [None]
  - Constipation [None]
  - Aggression [None]
  - Gait disturbance [None]
  - Blood glucose increased [None]
  - Tremor [None]

NARRATIVE: CASE EVENT DATE: 20170927
